FAERS Safety Report 8481648 (Version 4)
Quarter: 2012Q4

REPORT INFORMATION
  Report Type: 
  Country: DK (occurrence: DK)
  Receive Date: 20120329
  Receipt Date: 20121206
  Transmission Date: 20130627
  Serious: Yes (Congenital Anomaly)
  Sender: FDA-Public Use
  Company Number: DK-UCBSA-053880

PATIENT
  Age: 24 Hour
  Sex: Male

DRUGS (4)
  1. KEPPRA [Suspect]
     Indication: EPILEPSY
     Route: 064
     Dates: start: 20060201, end: 20080603
  2. DEPAKINE [Concomitant]
     Indication: EPILEPSY
     Dosage: UNKNOWN DOSE
     Route: 064
  3. LAMOTRIGINE [Concomitant]
     Indication: EPILEPSY
     Dosage: UNKNOWN DOSE
     Route: 064
  4. TOPIMAX [Concomitant]
     Indication: EPILEPSY
     Dosage: UNKNOWN DOSE
     Route: 064

REACTIONS (3)
  - Foot deformity [Not Recovered/Not Resolved]
  - Gait disturbance [Recovered/Resolved]
  - Foetal exposure during pregnancy [Recovered/Resolved]
